FAERS Safety Report 12290048 (Version 1)
Quarter: 2016Q2

REPORT INFORMATION
  Report Type: Spontaneous
  Country: US (occurrence: US)
  Receive Date: 20160421
  Receipt Date: 20160421
  Transmission Date: 20160815
  Serious: No
  Sender: FDA-Public Use
  Company Number: US-GLAXOSMITHKLINE-US2016GSK047471

PATIENT
  Sex: Female

DRUGS (2)
  1. TANZEUM [Suspect]
     Active Substance: ALBIGLUTIDE
     Indication: GLUCOSE TOLERANCE IMPAIRED
  2. TANZEUM [Suspect]
     Active Substance: ALBIGLUTIDE
     Indication: WEIGHT DECREASED
     Dosage: 50 MG, WE
     Route: 042
     Dates: start: 201601

REACTIONS (6)
  - Poor quality sleep [Unknown]
  - Device use error [Unknown]
  - Product use issue [Unknown]
  - Malaise [Unknown]
  - Confusional state [Unknown]
  - Pain [Unknown]
